FAERS Safety Report 11682077 (Version 1)
Quarter: 2015Q4

REPORT INFORMATION
  Report Type: Spontaneous
  Country: ES (occurrence: ES)
  Receive Date: 20151029
  Receipt Date: 20151029
  Transmission Date: 20160304
  Serious: Yes (Other)
  Sender: FDA-Public Use
  Company Number: ES-SUN PHARMACEUTICAL INDUSTRIES LTD-2015RR-105263

PATIENT

DRUGS (3)
  1. PREDNISONE. [Concomitant]
     Active Substance: PREDNISONE
     Indication: RHEUMATOID ARTHRITIS
     Route: 065
  2. DICLOFENAC [Suspect]
     Active Substance: DICLOFENAC
     Indication: RHEUMATOID ARTHRITIS
     Route: 065
  3. METHOTREXATE [Interacting]
     Active Substance: METHOTREXATE
     Indication: RHEUMATOID ARTHRITIS
     Dosage: 7.5 MG, 1/WEEK
     Route: 065

REACTIONS (8)
  - Toxicity to various agents [Recovered/Resolved]
  - Dyspnoea [Unknown]
  - Drug interaction [Unknown]
  - Lymphadenopathy [Unknown]
  - Pyrexia [Unknown]
  - Pallor [Unknown]
  - Skin ulcer [Recovered/Resolved]
  - Pancytopenia [Unknown]
